FAERS Safety Report 19285412 (Version 1)
Quarter: 2021Q2

REPORT INFORMATION
  Report Type: Spontaneous
  Country: US (occurrence: US)
  Receive Date: 20210521
  Receipt Date: 20210521
  Transmission Date: 20210717
  Serious: No
  Sender: FDA-Public Use
  Company Number: US-BAUSCH-BL-2021-013820

PATIENT

DRUGS (1)
  1. PENICILLAMINE [Suspect]
     Active Substance: PENICILLAMINE
     Indication: PRODUCT USED FOR UNKNOWN INDICATION
     Dosage: USED FOR 40 YEARS
     Route: 065

REACTIONS (3)
  - Tooth disorder [Unknown]
  - Bone density decreased [Unknown]
  - Gingival discomfort [Unknown]
